FAERS Safety Report 12967299 (Version 1)
Quarter: 2016Q4

REPORT INFORMATION
  Report Type: Spontaneous
  Country: US (occurrence: US)
  Receive Date: 20161123
  Receipt Date: 20161123
  Transmission Date: 20170207
  Serious: No
  Sender: FDA-Public Use
  Company Number: US-ELI_LILLY_AND_COMPANY-US201611004566

PATIENT
  Age: 67 Year
  Sex: Female

DRUGS (6)
  1. FUROSEMIDE. [Concomitant]
     Active Substance: FUROSEMIDE
  2. PRAVASTATIN                        /00880402/ [Concomitant]
     Active Substance: PRAVASTATIN SODIUM
  3. METOPROLOL TARTRATE. [Concomitant]
     Active Substance: METOPROLOL TARTRATE
  4. LISINOPRIL. [Concomitant]
     Active Substance: LISINOPRIL
  5. FORTEO [Suspect]
     Active Substance: TERIPARATIDE
     Indication: OSTEOPOROSIS
     Dosage: UNK, QD
     Route: 065
     Dates: start: 20160623
  6. POTASSIUM [Concomitant]
     Active Substance: POTASSIUM

REACTIONS (8)
  - Headache [Unknown]
  - Mental disorder [Not Recovered/Not Resolved]
  - Diarrhoea [Unknown]
  - Urine abnormality [Unknown]
  - Injection site erythema [Recovered/Resolved]
  - Injection site pain [Unknown]
  - Fatigue [Unknown]
  - Mucous stools [Unknown]

NARRATIVE: CASE EVENT DATE: 20160623
